FAERS Safety Report 8516378-3 (Version None)
Quarter: 2012Q3

REPORT INFORMATION
  Report Type: 
  Country: None (occurrence: None)
  Receive Date: 20120718
  Receipt Date: 20120711
  Transmission Date: 20120928
  Serious: Yes (Hospitalization)
  Sender: FDA-Public Use
  Company Number: US-BIOGENIDEC-2011BI000575

PATIENT
  Age: 75 Year
  Sex: Female

DRUGS (4)
  1. AVONEX [Suspect]
     Route: 030
     Dates: start: 20100301, end: 20100319
  2. AVONEX [Suspect]
     Route: 030
     Dates: start: 20100730, end: 20100805
  3. AVONEX [Suspect]
     Route: 030
     Dates: start: 20110208
  4. AVONEX [Suspect]
     Indication: MULTIPLE SCLEROSIS
     Route: 030

REACTIONS (5)
  - BRONCHITIS [None]
  - MOBILITY DECREASED [None]
  - PNEUMONIA [None]
  - MUSCULAR WEAKNESS [None]
  - MULTIPLE SCLEROSIS [None]
